FAERS Safety Report 5388744-9 (Version None)
Quarter: 2007Q3

REPORT INFORMATION
  Report Type: 
  Country: None (occurrence: None)
  Receive Date: 20070712
  Receipt Date: 20070702
  Transmission Date: 20080115
  Serious: Yes (Other)
  Sender: FDA-Public Use
  Company Number: 234861K07USA

PATIENT
  Age: 32 Year
  Sex: Female
  Weight: 77.1115 kg

DRUGS (1)
  1. REBIF [Suspect]
     Indication: MULTIPLE MYELOMA
     Dosage: 44 MCG, 2 IN 1 WEEKS, SUBCUTANEOUS
     Route: 058
     Dates: start: 20061212

REACTIONS (4)
  - DIABETES MELLITUS [None]
  - INFLUENZA LIKE ILLNESS [None]
  - INJECTION SITE BRUISING [None]
  - VISION BLURRED [None]
